FAERS Safety Report 9224905 (Version 1)
Quarter: 2013Q2

REPORT INFORMATION
  Report Type: Spontaneous
  Country: US (occurrence: None)
  Receive Date: 20130409
  Receipt Date: 20130409
  Transmission Date: 20140414
  Serious: No
  Sender: FDA-Public Use
  Company Number: None

PATIENT
  Age: 46 Year
  Sex: Female

DRUGS (9)
  1. LETAIRIS [Suspect]
     Indication: PULMONARY HYPERTENSION
     Dosage: 10 MG PO DAILY
     Route: 048
     Dates: start: 201205, end: 201304
  2. FUROSEMIDE [Concomitant]
  3. SPIRONOLACTONE [Concomitant]
  4. METOLAZONE [Concomitant]
  5. METOPROLOL [Concomitant]
  6. KCL [Concomitant]
  7. NORETHINDRONE [Concomitant]
  8. FERROUS SULFATE [Concomitant]
  9. FLUTICASONE NS [Concomitant]

REACTIONS (1)
  - Liver function test abnormal [None]
